FAERS Safety Report 7861757-0 (Version None)
Quarter: 2011Q4

REPORT INFORMATION
  Report Type: 
  Country: None (occurrence: None)
  Receive Date: 20111027
  Receipt Date: 20111013
  Transmission Date: 20120403
  Serious: Yes (Other)
  Sender: FDA-Public Use
  Company Number: DE-BAUSCH-2011BL006682

PATIENT
  Age: 48 Year
  Sex: Male

DRUGS (5)
  1. INFLANEFRAN [Concomitant]
     Indication: PRODUCT USED FOR UNKNOWN INDICATION
     Route: 047
  2. VOLTAREN [Concomitant]
     Indication: PRODUCT USED FOR UNKNOWN INDICATION
  3. XALATAN /SWE/ [Concomitant]
     Indication: PRODUCT USED FOR UNKNOWN INDICATION
     Route: 047
  4. COSOPT [Concomitant]
     Indication: PRODUCT USED FOR UNKNOWN INDICATION
     Route: 047
  5. LOTEMAX [Suspect]
     Indication: CORNEAL NEOVASCULARISATION
     Route: 047
     Dates: start: 20101201, end: 20110601

REACTIONS (1)
  - CORNEAL DECOMPENSATION [None]
